FAERS Safety Report 4685169-6 (Version None)
Quarter: 2005Q2

REPORT INFORMATION
  Report Type: 
  Country: None (occurrence: None)
  Receive Date: 20050608
  Receipt Date: 20050602
  Transmission Date: 20051028
  Serious: Yes (Death, Other)
  Sender: FDA-Public Use
  Company Number: 200515116GDDC

PATIENT
  Age: 70 Year
  Sex: Male

DRUGS (6)
  1. LASIX [Suspect]
     Indication: CARDIAC FAILURE CONGESTIVE
     Route: 048
     Dates: end: 19900916
  2. AMIODARONE HYDROCHLORIDE [Suspect]
     Indication: ARRHYTHMIA
     Route: 042
     Dates: start: 19900818, end: 19900904
  3. CAPTOPRIL [Suspect]
     Indication: CARDIAC FAILURE CONGESTIVE
     Route: 048
     Dates: start: 19900818, end: 19900916
  4. LANOXIN [Suspect]
     Indication: CARDIAC FAILURE CONGESTIVE
     Route: 048
     Dates: end: 19900916
  5. NITRODERM [Suspect]
     Indication: MYOCARDIAL ISCHAEMIA
     Route: 061
     Dates: end: 19900916
  6. ZYLOPRIM [Suspect]
     Indication: RESPIRATORY DISORDER
     Route: 048
     Dates: end: 19900916

REACTIONS (2)
  - LUNG INFILTRATION [None]
  - RESPIRATORY FAILURE [None]
